FAERS Safety Report 6145128-3 (Version None)
Quarter: 2009Q2

REPORT INFORMATION
  Report Type: 
  Country: None (occurrence: None)
  Receive Date: 20090406
  Receipt Date: 20090327
  Transmission Date: 20091009
  Serious: Yes (Life-Threatening, Hospitalization)
  Sender: FDA-Public Use
  Company Number: US-MEDIMMUNE-MEDI-0007866

PATIENT
  Sex: Male
  Weight: 9.216 kg

DRUGS (4)
  1. SYNAGIS [Suspect]
     Indication: ANTIVIRAL PROPHYLAXIS
     Route: 030
     Dates: start: 20081110, end: 20081211
  2. SYNAGIS [Suspect]
     Route: 030
     Dates: start: 20081110
  3. SYNAGIS [Suspect]
     Route: 030
     Dates: start: 20090107
  4. SYNAGIS [Suspect]
     Route: 030
     Dates: start: 20090205

REACTIONS (1)
  - PNEUMONIA RESPIRATORY SYNCYTIAL VIRAL [None]
